FAERS Safety Report 21932799 (Version 1)
Quarter: 2023Q1

REPORT INFORMATION
  Report Type: Spontaneous
  Country: US (occurrence: None)
  Receive Date: 20230131
  Receipt Date: 20230131
  Transmission Date: 20230418
  Serious: No
  Sender: FDA-Public Use
  Company Number: None

PATIENT

DRUGS (2)
  1. NIFEDIPINE [Suspect]
     Active Substance: NIFEDIPINE
  2. NIFEDIPINE [Suspect]
     Active Substance: NIFEDIPINE

REACTIONS (2)
  - Product selection error [None]
  - Transcription medication error [None]
